FAERS Safety Report 8621842-2 (Version None)
Quarter: 2012Q3

REPORT INFORMATION
  Report Type: 
  Country: None (occurrence: None)
  Receive Date: 20120822
  Receipt Date: 20120822
  Transmission Date: 20120928
  Serious: No
  Sender: FDA-Public Use
  Company Number: None

PATIENT
  Age: 64 Year
  Sex: Male
  Weight: 84.8 kg

DRUGS (2)
  1. MULTI-VITAMINS [Suspect]
     Indication: AGE-RELATED MACULAR DEGENERATION
     Dosage: 1 TAB BID PO
     Route: 048
     Dates: start: 20100528, end: 20120501
  2. MULTI-VITAMINS [Suspect]
     Indication: CATARACT
     Dosage: 1 TAB BID PO
     Route: 048
     Dates: start: 20100528, end: 20120501

REACTIONS (4)
  - FATIGUE [None]
  - EPISTAXIS [None]
  - HAEMORRHAGE [None]
  - HEADACHE [None]
